FAERS Safety Report 17373945 (Version 2)
Quarter: 2020Q3

REPORT INFORMATION
  Report Type: Spontaneous
  Country: US (occurrence: US)
  Receive Date: 20200206
  Receipt Date: 20200930
  Transmission Date: 20201102
  Serious: No
  Sender: FDA-Public Use
  Company Number: US-BIOGEN-2020BI00835831

PATIENT
  Sex: Female

DRUGS (3)
  1. TECFIDERA [Suspect]
     Active Substance: DIMETHYL FUMARATE
     Indication: MULTIPLE SCLEROSIS
     Dosage: TAKE ONE 120 MG CAPSULE BY MOUTH TWICE DAILY FOR THE FIRST 7 DAYS, THEREAFTER TAKE ONE 240 MG CAP...
     Route: 048
     Dates: start: 20200108
  2. TECFIDERA [Suspect]
     Active Substance: DIMETHYL FUMARATE
     Dosage: TAKE ONE 120 MG CAPSULE BY MOUTH TWICE DAILY FOR THE FIRST 7 DAYS, THEREAFTER TAKE ONE 240 MG CAP...
     Route: 048
     Dates: start: 202001
  3. IBUPROFEN. [Concomitant]
     Active Substance: IBUPROFEN
     Route: 065

REACTIONS (4)
  - Drug ineffective [Unknown]
  - Pruritus [Unknown]
  - Flushing [Unknown]
  - Night sweats [Unknown]
